FAERS Safety Report 8936951 (Version 1)
Quarter: 2012Q4

REPORT INFORMATION
  Report Type: Report from Study
  Country: ES (occurrence: ES)
  Receive Date: 20121130
  Receipt Date: 20121130
  Transmission Date: 20130627
  Serious: Yes (Death, Hospitalization, Other)
  Sender: FDA-Public Use
  Company Number: ES-ROCHE-1157227

PATIENT
  Age: 8 Year
  Sex: Male

DRUGS (4)
  1. MYCOPHENOLATE MOFETIL [Suspect]
     Indication: PROPHYLAXIS AGAINST TRANSPLANT REJECTION
     Route: 065
  2. URBASON [Suspect]
     Indication: PROPHYLAXIS AGAINST TRANSPLANT REJECTION
     Route: 065
  3. ADVAGRAF [Suspect]
     Indication: PROPHYLAXIS AGAINST TRANSPLANT REJECTION
     Route: 065
  4. OSELTAMIVIR [Concomitant]
     Indication: INFLUENZA

REACTIONS (6)
  - Acute hepatic failure [Fatal]
  - Herpes simplex [Fatal]
  - Diarrhoea [Unknown]
  - Haemodynamic instability [Unknown]
  - Oesophageal ulcer [Unknown]
  - Glossitis [Unknown]
